FAERS Safety Report 10541928 (Version 1)
Quarter: 2014Q4

REPORT INFORMATION
  Report Type: Spontaneous
  Country: IN (occurrence: IN)
  Receive Date: 20141024
  Receipt Date: 20141024
  Transmission Date: 20150529
  Serious: Yes (Disabling, Other)
  Sender: FDA-Public Use
  Company Number: IN-BAYER-2014-154021

PATIENT
  Age: 45 Year
  Sex: Male

DRUGS (2)
  1. PLATELETS [Concomitant]
     Active Substance: HUMAN PLATELET, ALLOGENIC
     Indication: DENGUE FEVER
     Dosage: UNK
     Route: 042
     Dates: start: 2013
  2. CIPROFLOXACIN BETAIN [Suspect]
     Active Substance: CIPROFLOXACIN
     Indication: DENGUE FEVER
     Dosage: 200 MG, UNK
     Route: 042
     Dates: start: 2013

REACTIONS (2)
  - Atrophy of globe [Not Recovered/Not Resolved]
  - Endophthalmitis [Not Recovered/Not Resolved]

NARRATIVE: CASE EVENT DATE: 2013
